FAERS Safety Report 21195896 (Version 2)
Quarter: 2022Q3

REPORT INFORMATION
  Report Type: Spontaneous
  Country: NL (occurrence: NL)
  Receive Date: 20220810
  Receipt Date: 20220816
  Transmission Date: 20221027
  Serious: Yes (Death, Life-Threatening, Hospitalization, Other)
  Sender: FDA-Public Use
  Company Number: None

PATIENT
  Age: 69 Year
  Sex: Male
  Weight: 117 kg

DRUGS (2)
  1. IPILIMUMAB [Suspect]
     Active Substance: IPILIMUMAB
     Indication: Malignant melanoma
     Dosage: 1DD 350MG?STERILE CONCENTRATE FOR INFUSION
     Route: 065
     Dates: start: 20220708, end: 20220709
  2. NIVOLUMAB [Suspect]
     Active Substance: NIVOLUMAB
     Indication: Malignant melanoma
     Dosage: 1DD 120MG?STERILE CONCENTRATE FOR INFUSION
     Route: 065
     Dates: start: 20220708, end: 20220709

REACTIONS (5)
  - Type 1 diabetes mellitus [Fatal]
  - Thyroiditis [Fatal]
  - Diabetic ketoacidosis [Fatal]
  - Atrial fibrillation [Fatal]
  - Off label use [Unknown]

NARRATIVE: CASE EVENT DATE: 20220725
